FAERS Safety Report 5557803-X (Version None)
Quarter: 2007Q4

REPORT INFORMATION
  Report Type: 
  Country: None (occurrence: None)
  Receive Date: 20071214
  Receipt Date: 20071205
  Transmission Date: 20080405
  Serious: Yes (Hospitalization)
  Sender: FDA-Public Use
  Company Number: JP-MERCK-0712USA02549

PATIENT
  Age: 45 Year
  Sex: Male

DRUGS (5)
  1. COZAAR [Suspect]
     Indication: CEREBRAL ARTERY STENOSIS
     Route: 048
     Dates: start: 20021101
  2. COZAAR [Suspect]
     Route: 048
  3. AMLODIPINE BESYLATE [Concomitant]
     Indication: CEREBRAL ARTERY STENOSIS
     Route: 048
     Dates: start: 20021101
  4. AMLODIPINE BESYLATE [Concomitant]
     Route: 048
     Dates: start: 20060701
  5. ASPIRIN [Concomitant]
     Indication: CEREBRAL ARTERY STENOSIS
     Route: 048
     Dates: start: 20021101

REACTIONS (2)
  - SINUS BRADYCARDIA [None]
  - TRANSIENT ISCHAEMIC ATTACK [None]
